FAERS Safety Report 14493033 (Version 2)
Quarter: 2018Q1

REPORT INFORMATION
  Report Type: Spontaneous
  Country: CZ (occurrence: CZ)
  Receive Date: 20180206
  Receipt Date: 20180314
  Transmission Date: 20180509
  Serious: Yes (Hospitalization)
  Sender: FDA-Public Use
  Company Number: PHHY2017CZ197008

PATIENT
  Age: 42 Year
  Sex: Male

DRUGS (14)
  1. BACLOFEN. [Suspect]
     Active Substance: BACLOFEN
     Indication: NECK PAIN
     Dosage: UNK
     Route: 048
  2. DIAZEPAM. [Concomitant]
     Active Substance: DIAZEPAM
     Indication: SEIZURE
     Dosage: 10 MG, UNK
     Route: 042
  3. BACLOFEN. [Suspect]
     Active Substance: BACLOFEN
     Indication: NECK PAIN
  4. MIDAZOLAM [Concomitant]
     Active Substance: MIDAZOLAM HYDROCHLORIDE
     Indication: SEIZURE
     Dosage: 5 MG, UNK
     Route: 042
  5. CLONAZEPAM. [Suspect]
     Active Substance: CLONAZEPAM
     Indication: MUSCULOSKELETAL PAIN
  6. NALOXONE [Concomitant]
     Active Substance: NALOXONE
     Indication: COMA
     Dosage: 400 MG, UNK
     Route: 065
  7. ANEXATE [Concomitant]
     Active Substance: FLUMAZENIL
     Indication: PRODUCT USED FOR UNKNOWN INDICATION
     Route: 042
  8. CLONAZEPAM. [Suspect]
     Active Substance: CLONAZEPAM
     Indication: MUSCULOSKELETAL PAIN
     Dosage: 2 MG, BID
     Route: 048
  9. CLONAZEPAM. [Suspect]
     Active Substance: CLONAZEPAM
     Indication: SPINAL PAIN
  10. DIAZEPAM. [Concomitant]
     Active Substance: DIAZEPAM
     Indication: ALTERED STATE OF CONSCIOUSNESS
  11. CLONAZEPAM. [Suspect]
     Active Substance: CLONAZEPAM
     Indication: NECK PAIN
  12. CLONAZEPAM. [Suspect]
     Active Substance: CLONAZEPAM
     Indication: MUSCULOSKELETAL PAIN
  13. MIDAZOLAM [Concomitant]
     Active Substance: MIDAZOLAM HYDROCHLORIDE
     Indication: ALTERED STATE OF CONSCIOUSNESS
  14. ATROPINE. [Concomitant]
     Active Substance: ATROPINE
     Indication: COMA
     Dosage: 0.5 MG, UNK
     Route: 042

REACTIONS (10)
  - Seizure [Unknown]
  - Coma [Unknown]
  - Overdose [Unknown]
  - Blood pressure increased [Unknown]
  - Headache [Unknown]
  - Dysarthria [Unknown]
  - Altered state of consciousness [Unknown]
  - Product use in unapproved indication [Unknown]
  - Heart rate decreased [Unknown]
  - Somnolence [Unknown]
